FAERS Safety Report 25505077 (Version 1)
Quarter: 2025Q3

REPORT INFORMATION
  Report Type: Spontaneous
  Country: US (occurrence: US)
  Receive Date: 20250702
  Receipt Date: 20250702
  Transmission Date: 20251020
  Serious: Yes (Death, Life-Threatening, Hospitalization, Other)
  Sender: PURDUE
  Company Number: US-NAPPMUNDI-GBR-2025-0126802

PATIENT
  Age: 21 Year
  Sex: Male

DRUGS (2)
  1. METHYLPHENIDATE HYDROCHLORIDE [Suspect]
     Active Substance: METHYLPHENIDATE HYDROCHLORIDE
     Indication: Attention deficit hyperactivity disorder
     Route: 065
  2. LISINOPRIL [Suspect]
     Active Substance: LISINOPRIL
     Indication: Hypertension
     Route: 065

REACTIONS (10)
  - Eye injury [Fatal]
  - Foreign body in eye [Fatal]
  - Vomiting [Fatal]
  - Craniofacial fracture [Fatal]
  - Craniocerebral injury [Fatal]
  - Traumatic intracranial haemorrhage [Fatal]
  - Leukocytosis [Fatal]
  - Anxiety [Unknown]
  - Aggression [Unknown]
  - Skin abrasion [Unknown]
